FAERS Safety Report 7773241-3 (Version None)
Quarter: 2011Q3

REPORT INFORMATION
  Report Type: 
  Country: None (occurrence: None)
  Receive Date: 20110922
  Receipt Date: 20110914
  Transmission Date: 20111222
  Serious: Yes (Hospitalization)
  Sender: FDA-Public Use
  Company Number: US-US-EMD SERONO, INC.-7049314

PATIENT
  Sex: Female

DRUGS (27)
  1. BLOOD THINNERS [Concomitant]
     Indication: ANTICOAGULANT THERAPY
  2. LOVENOX [Concomitant]
  3. CRESTOR [Concomitant]
     Route: 048
  4. METOPROLOL [Concomitant]
     Route: 048
  5. REBIF [Suspect]
     Indication: MULTIPLE SCLEROSIS
     Route: 058
     Dates: start: 20110113
  6. TOPAMAX [Concomitant]
     Route: 048
  7. MULTI-VITAMIN [Concomitant]
  8. FLOVENT [Concomitant]
  9. TRILEPTAL [Concomitant]
  10. VITAMIN D [Concomitant]
  11. AMRIX [Concomitant]
  12. FLEXERIL [Concomitant]
  13. PROMETHAZINE [Concomitant]
  14. LISINOPRIL [Concomitant]
     Route: 048
  15. VALIUM [Concomitant]
     Route: 048
  16. MAGNESIUM [Concomitant]
  17. VITAMIN B-12 [Concomitant]
  18. BACLOFEN [Concomitant]
     Route: 048
  19. COUMADIN [Concomitant]
  20. CALCIUM CARBONATE [Concomitant]
  21. PROAIR HFA [Concomitant]
  22. PREVACID [Concomitant]
     Route: 048
  23. LASIX [Concomitant]
     Route: 048
  24. MECLIZINE [Concomitant]
     Route: 048
  25. POTASSIUM CHLORIDE [Concomitant]
  26. PERCOCET [Concomitant]
     Route: 048
  27. ACIPHEX [Concomitant]
     Route: 048

REACTIONS (9)
  - PROTHROMBIN TIME ABNORMAL [None]
  - BLOOD THYROID STIMULATING HORMONE DECREASED [None]
  - INAPPROPRIATE SCHEDULE OF DRUG ADMINISTRATION [None]
  - CEREBROVASCULAR ACCIDENT [None]
  - MULTIPLE SCLEROSIS RELAPSE [None]
  - CEREBRAL HAEMORRHAGE [None]
  - INJECTION SITE HAEMATOMA [None]
  - INJECTION SITE PAIN [None]
  - THERAPEUTIC RESPONSE UNEXPECTED [None]
